FAERS Safety Report 21485332 (Version 2)
Quarter: 2023Q4

REPORT INFORMATION
  Report Type: Spontaneous
  Country: US (occurrence: US)
  Receive Date: 20221020
  Receipt Date: 20231120
  Transmission Date: 20240110
  Serious: Yes (Hospitalization)
  Sender: FDA-Public Use
  Company Number: US-PFIZER INC-202201236835

PATIENT
  Age: 75 Year
  Sex: Female
  Weight: 83.91 kg

DRUGS (13)
  1. XELJANZ XR [Suspect]
     Active Substance: TOFACITINIB CITRATE
     Indication: Rheumatoid arthritis
     Dosage: 11 MG, 1X/DAY
     Route: 048
  2. XELJANZ XR [Suspect]
     Active Substance: TOFACITINIB CITRATE
     Indication: Swelling
  3. LEFLUNOMIDE [Suspect]
     Active Substance: LEFLUNOMIDE
     Indication: Rheumatoid arthritis
     Dosage: 20 MG, 1X/DAY
  4. PREDNISONE [Concomitant]
     Active Substance: PREDNISONE
     Indication: Inflammation
     Dosage: 5 MG
  5. PREDNISONE [Concomitant]
     Active Substance: PREDNISONE
     Dosage: 10 MG
  6. GABAPENTIN [Concomitant]
     Active Substance: GABAPENTIN
     Indication: Pain
     Dosage: 300 MG, 2X/DAY
  7. ATORVASTATIN [Concomitant]
     Active Substance: ATORVASTATIN
     Indication: Blood cholesterol increased
     Dosage: 20 MG, 1X/DAY
  8. TAMSULOSIN [Concomitant]
     Active Substance: TAMSULOSIN
     Indication: Urine abnormality
     Dosage: 0.4 MG, 1X/DAY (EVERY NIGHT AT BEDTIME)
     Route: 048
     Dates: start: 20220921
  9. OMEPRAZOLE [Concomitant]
     Active Substance: OMEPRAZOLE
     Indication: Dyspepsia
     Dosage: 20 MG, 1X/DAY
  10. OXYBUTYNIN [Concomitant]
     Active Substance: OXYBUTYNIN
     Indication: Bladder ablation
     Dosage: 5 MG, 1X/DAY
     Dates: start: 202206
  11. OXYBUTYNIN [Concomitant]
     Active Substance: OXYBUTYNIN
     Indication: Prostatomegaly
  12. VITAMIN D NOS [Concomitant]
     Active Substance: VITAMIN D NOS
     Dosage: UNK
  13. CALCIUM [Concomitant]
     Active Substance: CALCIUM
     Dosage: UNK

REACTIONS (3)
  - Eye disorder [Unknown]
  - Peripheral swelling [Unknown]
  - Pain [Unknown]
